FAERS Safety Report 9587885 (Version 1)
Quarter: 2013Q4

REPORT INFORMATION
  Report Type: Spontaneous
  Country: TW (occurrence: TW)
  Receive Date: 20131003
  Receipt Date: 20131003
  Transmission Date: 20140711
  Serious: Yes (Other)
  Sender: FDA-Public Use
  Company Number: TW-009507513-1309TWN012708

PATIENT
  Age: 59 Year
  Sex: Male

DRUGS (2)
  1. FINASTERIDE [Suspect]
     Indication: BENIGN PROSTATIC HYPERPLASIA
     Dosage: 5 MG, QD
     Route: 048
     Dates: start: 200603, end: 200703
  2. FINASTERIDE [Suspect]
     Dosage: 2.5 MG, QD
     Route: 048
     Dates: start: 200703

REACTIONS (3)
  - Breast neoplasm [Unknown]
  - Simple mastectomy [Unknown]
  - Libido decreased [Recovering/Resolving]
